FAERS Safety Report 5830126-7 (Version None)
Quarter: 2008Q3

REPORT INFORMATION
  Report Type: 
  Country: None (occurrence: None)
  Receive Date: 20080801
  Receipt Date: 20080721
  Transmission Date: 20090109
  Serious: Yes (Other)
  Sender: FDA-Public Use
  Company Number: US-TYCO HEALTHCARE/MALLINCKRODT-T200800994

PATIENT

DRUGS (12)
  1. OPTIMARK [Suspect]
     Indication: NUCLEAR MAGNETIC RESONANCE IMAGING
     Dosage: .5MMOL/ML, SINGLE
     Route: 042
     Dates: start: 20030311, end: 20030311
  2. MAGNEVIST [Suspect]
     Indication: SCAN
  3. OMNISCAN [Suspect]
     Indication: SCAN
  4. PROHANCE [Suspect]
     Indication: SCAN
  5. MULTIHANCE [Suspect]
     Indication: SCAN
  6. HYDROCODONE BITARTRATE [Concomitant]
     Indication: PAIN
     Dosage: UNK, PRN
  7. NORVASC [Concomitant]
     Indication: HYPERTENSION
     Dosage: 5 MG, UNK
  8. SYNTHROID [Concomitant]
     Indication: THYROID THERAPY
     Dosage: 50 UG, UNK
  9. PREMARIN [Concomitant]
     Indication: HORMONE REPLACEMENT THERAPY
     Dates: start: 20030101
  10. ALPRAZOLAM [Concomitant]
     Indication: ANXIETY
     Dosage: 2 MG, UNK
  11. AMARYL [Concomitant]
     Indication: DIABETES MELLITUS
     Dosage: 4 MG, UNK
     Dates: start: 20030101
  12. TRICOR [Concomitant]
     Indication: BLOOD CHOLESTEROL
     Dosage: 145 MG, UNK
     Dates: start: 20030101

REACTIONS (1)
  - NEPHROGENIC SYSTEMIC FIBROSIS [None]
